FAERS Safety Report 5109521-X (Version None)
Quarter: 2006Q3

REPORT INFORMATION
  Report Type: 
  Country: None (occurrence: None)
  Receive Date: 20060918
  Receipt Date: 20060904
  Transmission Date: 20061208
  Serious: Yes (Hospitalization)
  Sender: FDA-Public Use
  Company Number: 2006107489

PATIENT
  Age: 75 Year
  Sex: Male
  Weight: 80.3 kg

DRUGS (4)
  1. SUTENT [Suspect]
     Indication: METASTATIC RENAL CELL CARCINOMA
     Dosage: 50 MG (50 MG, 1 IN 1 D), ORAL
     Route: 048
     Dates: start: 20060724
  2. NORVASC [Concomitant]
  3. LIPITOR [Concomitant]
  4. AVAPRO [Concomitant]

REACTIONS (2)
  - CONDITION AGGRAVATED [None]
  - DELIRIUM [None]
